FAERS Safety Report 8379217-X (Version None)
Quarter: 2012Q2

REPORT INFORMATION
  Report Type: 
  Country: None (occurrence: None)
  Receive Date: 20120523
  Receipt Date: 20120514
  Transmission Date: 20120825
  Serious: Yes (Hospitalization, Other)
  Sender: FDA-Public Use
  Company Number: CN-GENZYME-CERZ-1002505

PATIENT
  Sex: Male
  Weight: 64 kg

DRUGS (2)
  1. CEREZYME [Suspect]
     Dosage: 15 U/KG, Q2W
     Route: 042
     Dates: start: 20110101, end: 20110101
  2. CEREZYME [Suspect]
     Indication: GAUCHER'S DISEASE
     Dosage: 60 U/KG, Q2W
     Route: 042
     Dates: start: 20000101, end: 20110101

REACTIONS (7)
  - OBSTRUCTIVE AIRWAYS DISORDER [None]
  - DISEASE PROGRESSION [None]
  - SKIN HAEMORRHAGE [None]
  - TACHYPNOEA [None]
  - CHEST PAIN [None]
  - OEDEMA PERIPHERAL [None]
  - WEIGHT DECREASED [None]
